FAERS Safety Report 10215813 (Version 2)
Quarter: 2014Q2

REPORT INFORMATION
  Report Type: Report from Study
  Country: US (occurrence: US)
  Receive Date: 20140604
  Receipt Date: 20140613
  Transmission Date: 20141212
  Serious: Yes (Death)
  Sender: FDA-Public Use
  Company Number: PHEH2014US011075

PATIENT
  Sex: Male
  Weight: 70.3 kg

DRUGS (13)
  1. EXJADE [Suspect]
     Indication: MYELODYSPLASTIC SYNDROME
     Dosage: 1000 MG, DAILY
     Route: 048
     Dates: start: 20130612, end: 20140424
  2. CENTRUM SILVER [Concomitant]
     Dosage: UNK UKN, UNK
  3. AMLODIPINE [Concomitant]
     Dosage: UNK UKN, UNK
  4. ATENOLOL [Concomitant]
     Dosage: UNK UKN, UNK
  5. SIMVASTATIN [Concomitant]
     Dosage: UNK UKN, UNK
  6. TAMSULOSIN [Concomitant]
     Dosage: UNK UKN, UNK
  7. VALIUM [Concomitant]
     Dosage: UNK UKN, UNK
  8. AVODART [Concomitant]
     Dosage: UNK UKN, UNK
  9. SPIRIVA HANDIHALER [Concomitant]
     Dosage: UNK UKN, UNK
  10. FORADIL [Concomitant]
     Dosage: UNK UKN, UNK
  11. CIPRO//CIPROFLOXACIN [Concomitant]
     Dosage: UNK UKN, UNK
  12. HYDROXYUREA [Concomitant]
     Dosage: UNK UKN, UNK
  13. HYDROCHLOROTHIAZIDE [Concomitant]
     Dosage: UNK UKN, UNK

REACTIONS (3)
  - Myelodysplastic syndrome [Fatal]
  - Anaemia [Unknown]
  - Thrombocytopenia [Unknown]
